FAERS Safety Report 17766578 (Version 3)
Quarter: 2022Q3

REPORT INFORMATION
  Report Type: Spontaneous
  Country: US (occurrence: US)
  Receive Date: 20200511
  Receipt Date: 20220714
  Transmission Date: 20221026
  Serious: No
  Sender: FDA-Public Use
  Company Number: US-GW PHARMA-202005USGW01664

PATIENT
  Sex: Male

DRUGS (2)
  1. EPIDIOLEX [Suspect]
     Active Substance: CANNABIDIOL
     Indication: Epilepsy
     Dosage: 670 MILLIGRAM, BID
     Route: 048
     Dates: start: 20190706
  2. EPIDIOLEX [Suspect]
     Active Substance: CANNABIDIOL
     Dosage: 13.4 MILLILITER
     Route: 048
     Dates: start: 201908

REACTIONS (3)
  - Seizure [Unknown]
  - Product administration interrupted [Unknown]
  - Insurance issue [Recovered/Resolved]
